FAERS Safety Report 17366045 (Version 2)
Quarter: 2020Q1

REPORT INFORMATION
  Report Type: Spontaneous
  Country: US (occurrence: US)
  Receive Date: 20200204
  Receipt Date: 20200208
  Transmission Date: 20200409
  Serious: Yes (Hospitalization)
  Sender: FDA-Public Use
  Company Number: US-TAKEDA-2020TUS005544

PATIENT
  Age: 18 Year
  Sex: Female
  Weight: 54.42 kg

DRUGS (1)
  1. ENTYVIO [Suspect]
     Active Substance: VEDOLIZUMAB
     Indication: CROHN^S DISEASE
     Dosage: 300 MILLIGRAM
     Route: 042
     Dates: start: 20200122

REACTIONS (1)
  - Pneumonia [Unknown]
